FAERS Safety Report 7128964-6 (Version None)
Quarter: 2010Q4

REPORT INFORMATION
  Report Type: 
  Country: None (occurrence: None)
  Receive Date: 20101130
  Receipt Date: 20101122
  Transmission Date: 20110411
  Serious: Yes (Other)
  Sender: FDA-Public Use
  Company Number: US-AMGEN-USASP2010000542

PATIENT

DRUGS (3)
  1. ENBREL [Suspect]
     Indication: JUVENILE ARTHRITIS
     Dosage: 50 MG, QWK
     Dates: start: 20100501
  2. ENBREL [Suspect]
     Dosage: 50 MG, QWK
     Dates: start: 20100603, end: 20101018
  3. ENBREL [Suspect]
     Dosage: 45 MG, QWK
     Dates: start: 20101018

REACTIONS (2)
  - HYPOAESTHESIA [None]
  - LIVER FUNCTION TEST ABNORMAL [None]
